FAERS Safety Report 8323073 (Version 8)
Quarter: 2016Q2

REPORT INFORMATION
  Report Type: Report from Study
  Country: CA (occurrence: CA)
  Receive Date: 20120105
  Receipt Date: 20160628
  Transmission Date: 20160815
  Serious: Yes (Other)
  Sender: FDA-Public Use
  Company Number: CA-ROCHE-1006887

PATIENT
  Age: 69 Year
  Sex: Female
  Weight: 70.3 kg

DRUGS (14)
  1. NORVASC [Concomitant]
     Active Substance: AMLODIPINE BESYLATE
     Route: 065
  2. ACTONEL [Concomitant]
     Active Substance: RISEDRONATE SODIUM
     Route: 065
  3. RIFAMPIN. [Concomitant]
     Active Substance: RIFAMPIN
  4. RITUXAN [Suspect]
     Active Substance: RITUXIMAB
     Indication: RHEUMATOID ARTHRITIS
     Dosage: DAY 1 + 15
     Route: 042
     Dates: start: 20110301
  5. MEDROL [Concomitant]
     Active Substance: METHYLPREDNISOLONE
     Route: 065
  6. DIPHENHYDRAMINE HCL [Concomitant]
     Active Substance: DIPHENHYDRAMINE HYDROCHLORIDE
     Indication: PREMEDICATION
     Route: 048
     Dates: start: 20110301
  7. RITUXAN [Suspect]
     Active Substance: RITUXIMAB
     Route: 042
     Dates: start: 20111018
  8. PREVACID [Concomitant]
     Active Substance: LANSOPRAZOLE
     Route: 065
  9. URSODIOL. [Concomitant]
     Active Substance: URSODIOL
     Route: 065
  10. AVAPRO [Concomitant]
     Active Substance: IRBESARTAN
     Route: 065
  11. ACETAMINOPHEN. [Concomitant]
     Active Substance: ACETAMINOPHEN
     Indication: PREMEDICATION
     Route: 048
     Dates: start: 20110301
  12. HEPTOVIR [Concomitant]
     Active Substance: LAMIVUDINE
  13. RITUXAN [Suspect]
     Active Substance: RITUXIMAB
     Route: 042
     Dates: start: 20111207
  14. METHYLPREDNISOLONE. [Concomitant]
     Active Substance: METHYLPREDNISOLONE
     Route: 042
     Dates: start: 20110518

REACTIONS (9)
  - Blood pressure increased [Unknown]
  - Infusion related reaction [Unknown]
  - Lower respiratory tract infection [Not Recovered/Not Resolved]
  - Heart rate increased [Unknown]
  - Blood pressure increased [Unknown]
  - Trigeminal neuralgia [Not Recovered/Not Resolved]
  - Joint swelling [Unknown]
  - Hepatitis B [Recovering/Resolving]
  - Nasopharyngitis [Unknown]

NARRATIVE: CASE EVENT DATE: 2013
